FAERS Safety Report 14069008 (Version 2)
Quarter: 2017Q4

REPORT INFORMATION
  Report Type: Spontaneous
  Country: PL (occurrence: PL)
  Receive Date: 20171010
  Receipt Date: 20171011
  Transmission Date: 20180321
  Serious: Yes (Life-Threatening)
  Sender: FDA-Public Use
  Company Number: PL-CELGENEUS-POL-20170907402

PATIENT
  Age: 56 Year
  Sex: Female

DRUGS (1)
  1. ABRAXANE [Suspect]
     Active Substance: PACLITAXEL
     Indication: OVARIAN CANCER
     Route: 041
     Dates: start: 20170209, end: 20170209

REACTIONS (4)
  - Hyperhidrosis [Unknown]
  - Bradycardia [Unknown]
  - Anaphylactic shock [Unknown]
  - Decreased eye contact [Unknown]

NARRATIVE: CASE EVENT DATE: 20170209
